FAERS Safety Report 10265200 (Version 3)
Quarter: 2014Q3

REPORT INFORMATION
  Report Type: Spontaneous
  Country: IT (occurrence: IT)
  Receive Date: 20140627
  Receipt Date: 20140807
  Transmission Date: 20150326
  Serious: Yes (Hospitalization)
  Sender: FDA-Public Use
  Company Number: IT-SA-2014SA082695

PATIENT
  Age: 67 Year
  Sex: Female

DRUGS (7)
  1. RANEXA [Suspect]
     Active Substance: RANOLAZINE
     Indication: ANGINA PECTORIS
     Route: 048
     Dates: start: 20140505, end: 20140618
  2. EUTIROX [Concomitant]
     Active Substance: LEVOTHYROXINE SODIUM
  3. MICARDIS PLUS [Concomitant]
     Active Substance: HYDROCHLOROTHIAZIDE\TELMISARTAN
     Dosage: STRENGTH: 40/12.5?14 TABLETS IN BLISTER ORAL USE
  4. PLAVIX [Suspect]
     Active Substance: CLOPIDOGREL BISULFATE
     Indication: ANGINA UNSTABLE
     Route: 048
     Dates: start: 20140428, end: 20140504
  5. CARDIOASPIRIN [Suspect]
     Active Substance: ASPIRIN
     Indication: ANGINA UNSTABLE
     Route: 048
     Dates: start: 20140428, end: 20140510
  6. LANSOPRAZOLE. [Concomitant]
     Active Substance: LANSOPRAZOLE
  7. TORVAST [Concomitant]
     Active Substance: ATORVASTATIN
     Dosage: STRENGTH: 20 MG; 90 ?TABLETS IN HDPE VIAL

REACTIONS (5)
  - Visual impairment [Recovering/Resolving]
  - Nausea [Recovering/Resolving]
  - Cerebral haemorrhage [Recovering/Resolving]
  - Headache [Recovering/Resolving]
  - Confusional state [Recovering/Resolving]

NARRATIVE: CASE EVENT DATE: 20140509
